FAERS Safety Report 26181009 (Version 1)
Quarter: 2025Q4

REPORT INFORMATION
  Report Type: Spontaneous
  Country: CN (occurrence: CN)
  Receive Date: 20251221
  Receipt Date: 20251221
  Transmission Date: 20260118
  Serious: Yes (Other)
  Sender: COHERUS
  Company Number: CN-SHANGHAI JUNSHI BIOSCIENCES CO., LTD.-CN2025016919

PATIENT

DRUGS (3)
  1. TORIPALIMAB [Suspect]
     Active Substance: TORIPALIMAB
     Indication: Oropharyngeal squamous cell carcinoma
     Dosage: 240 MG, SINGLE
     Route: 041
     Dates: start: 20251014, end: 20251014
  2. FLUOROURACIL [Concomitant]
     Active Substance: FLUOROURACIL
     Indication: Oropharyngeal squamous cell carcinoma
     Dosage: 1.25 G, SINGLE
     Route: 041
     Dates: start: 20251014, end: 20251014
  3. CISPLATIN [Concomitant]
     Active Substance: CISPLATIN
     Indication: Oropharyngeal squamous cell carcinoma
     Dosage: 35 MG, SINGLE
     Route: 041
     Dates: start: 20251014, end: 20251014

REACTIONS (2)
  - Urinary incontinence [Unknown]
  - Hyperhidrosis [Unknown]

NARRATIVE: CASE EVENT DATE: 20251017
